FAERS Safety Report 5841091-0 (Version None)
Quarter: 2008Q3

REPORT INFORMATION
  Report Type: 
  Country: None (occurrence: None)
  Receive Date: 20080812
  Receipt Date: 20080806
  Transmission Date: 20090109
  Serious: Yes (Disabling)
  Sender: FDA-Public Use
  Company Number: DE-SP-2008-02439

PATIENT
  Age: 71 Year
  Sex: Female

DRUGS (1)
  1. IMMUCYST [Suspect]
     Indication: BLADDER CANCER
     Dosage: NOT REPORTED
     Route: 043
     Dates: start: 20070401, end: 20080101

REACTIONS (2)
  - DYSURIA [None]
  - POLLAKIURIA [None]
